FAERS Safety Report 13803273 (Version 1)
Quarter: 2017Q3

REPORT INFORMATION
  Report Type: Other
  Country: DE (occurrence: DE)
  Receive Date: 20170728
  Receipt Date: 20170728
  Transmission Date: 20171127
  Serious: Yes (Other)
  Sender: FDA-Public Use
  Company Number: DE-LUPIN PHARMACEUTICALS INC.-2016-05105

PATIENT
  Age: 31 Year
  Sex: Female
  Weight: 122 kg

DRUGS (4)
  1. LAMOTRIGINE. [Suspect]
     Active Substance: LAMOTRIGINE
     Dosage: FROM GESTATIONAL WEEK 11+1 200MG/DAY
     Route: 048
  2. LAMOTRIGINE. [Suspect]
     Active Substance: LAMOTRIGINE
     Indication: EPILEPSY
     Dosage: INITIAL DOSAGE 100MG/DAY
     Route: 048
  3. LAMOTRIGINE. [Suspect]
     Active Substance: LAMOTRIGINE
     Dosage: FROM GESTATIONAL WEEK 19+6 400MG/DAY
     Route: 048
  4. FOLIO FORTE (NEM) [Concomitant]
     Indication: PROPHYLAXIS OF NEURAL TUBE DEFECT
     Dosage: .8 MG,QD,
     Route: 048

REACTIONS (2)
  - Exposure during pregnancy [Unknown]
  - Generalised tonic-clonic seizure [Unknown]
